FAERS Safety Report 5056412-9 (Version None)
Quarter: 2006Q3

REPORT INFORMATION
  Report Type: 
  Country: None (occurrence: None)
  Receive Date: 20060720
  Receipt Date: 20060710
  Transmission Date: 20061208
  Serious: Yes (Other)
  Sender: FDA-Public Use
  Company Number: US-ROCHE-454999

PATIENT
  Age: 52 Year
  Sex: Female

DRUGS (5)
  1. PEGASYS [Suspect]
     Dosage: PATIENT TAKES 1/2 DOSE PEGASYS WEEKLY.
     Route: 058
     Dates: start: 20060403
  2. COPEGUS [Suspect]
     Dosage: PATIENT TAKES 4 200MG TABLETS/DAY
     Route: 048
     Dates: start: 20060403
  3. NEUPOGEN [Concomitant]
  4. ARANESP [Concomitant]
  5. PROCRIT [Concomitant]

REACTIONS (6)
  - DEHYDRATION [None]
  - FATIGUE [None]
  - HEADACHE [None]
  - NAUSEA [None]
  - VOMITING [None]
  - WEIGHT DECREASED [None]
